FAERS Safety Report 10495438 (Version 1)
Quarter: 2014Q3

REPORT INFORMATION
  Report Type: Spontaneous
  Country: US (occurrence: None)
  Receive Date: 20140815
  Receipt Date: 20140815
  Transmission Date: 20150326
  Serious: Yes (Hospitalization, Other)
  Sender: FDA-Public Use
  Company Number: ADR-2013-02368

PATIENT
  Age: 65 Year
  Sex: Male

DRUGS (1)
  1. LIORESAL [Suspect]
     Active Substance: BACLOFEN
     Indication: MUSCLE SPASTICITY
     Dosage: 525MCG/DAY

REACTIONS (6)
  - Asthenia [None]
  - Incorrect dose administered [None]
  - Dizziness [None]
  - Mental status changes [None]
  - Somnolence [None]
  - Overdose [None]

NARRATIVE: CASE EVENT DATE: 20131226
